FAERS Safety Report 8036733-8 (Version None)
Quarter: 2012Q1

REPORT INFORMATION
  Report Type: 
  Country: None (occurrence: None)
  Receive Date: 20120111
  Receipt Date: 20120109
  Transmission Date: 20120608
  Serious: Yes (Death, Other)
  Sender: FDA-Public Use
  Company Number: DK-ROCHE-1028844

PATIENT

DRUGS (2)
  1. XELODA [Suspect]
     Indication: SQUAMOUS CELL CARCINOMA
     Route: 048
  2. PACLITAXEL [Suspect]
     Indication: SQUAMOUS CELL CARCINOMA

REACTIONS (2)
  - ALOPECIA TOTALIS [None]
  - DEATH [None]
